FAERS Safety Report 4839180-2 (Version None)
Quarter: 2005Q4

REPORT INFORMATION
  Report Type: 
  Country: None (occurrence: None)
  Receive Date: 20051128
  Receipt Date: 20051128
  Transmission Date: 20060501
  Serious: No
  Sender: FDA-Public Use
  Company Number: None

PATIENT
  Sex: Male

DRUGS (3)
  1. LORTAB [Suspect]
     Indication: LUMBAR VERTEBRAL FRACTURE
     Dates: start: 20050906
  2. LORTAB [Suspect]
     Indication: MULTIPLE MYELOMA
     Dates: start: 20050906
  3. LORTAB [Suspect]
     Indication: PATHOLOGICAL FRACTURE
     Dates: start: 20050906

REACTIONS (3)
  - LARYNGEAL MASS [None]
  - LUMBAR VERTEBRAL FRACTURE [None]
  - PATHOLOGICAL FRACTURE [None]
